FAERS Safety Report 10159628 (Version 1)
Quarter: 2014Q2

REPORT INFORMATION
  Report Type: Spontaneous
  Country: US (occurrence: US)
  Receive Date: 20140508
  Receipt Date: 20140508
  Transmission Date: 20141212
  Serious: No
  Sender: FDA-Public Use
  Company Number: US-B.I. PHARMACEUTICALS,INC./RIDGEFIELD-2014-BI-19642BP

PATIENT
  Age: 68 Year
  Sex: Female
  Weight: 66 kg

DRUGS (6)
  1. COMBIVENT [Suspect]
     Indication: CHRONIC OBSTRUCTIVE PULMONARY DISEASE
     Dosage: DOSE PER APPLICATION: 20 MCG/100 MCG; DAILY DOSE: 80 MCG/400 MCG
     Route: 055
     Dates: start: 201301
  2. LASIX [Concomitant]
     Indication: FLUID RETENTION
     Route: 048
  3. CARDIZEM [Concomitant]
     Indication: HYPERTENSION
     Route: 065
  4. COZAAR [Concomitant]
     Indication: HYPERTENSION
     Route: 048
  5. PRILOSEC [Concomitant]
     Indication: GASTROOESOPHAGEAL REFLUX DISEASE
     Route: 048
  6. ATIVAN [Concomitant]
     Indication: ANXIETY
     Route: 048

REACTIONS (2)
  - Cataract [Not Recovered/Not Resolved]
  - Stress fracture [Recovered/Resolved]
